FAERS Safety Report 24130016 (Version 2)
Quarter: 2025Q1

REPORT INFORMATION
  Report Type: Spontaneous
  Country: US (occurrence: US)
  Receive Date: 20240724
  Receipt Date: 20250131
  Transmission Date: 20250409
  Serious: No
  Sender: LEO PHARM
  Company Number: US-LEO Pharma-372189

PATIENT
  Age: 78 Year
  Sex: Female

DRUGS (2)
  1. ADBRY [Suspect]
     Active Substance: TRALOKINUMAB-LDRM
     Indication: Dermatitis atopic
     Route: 058
     Dates: start: 202407
  2. ADBRY [Suspect]
     Active Substance: TRALOKINUMAB-LDRM
     Indication: Dermatitis atopic
     Route: 058

REACTIONS (7)
  - Dizziness [Unknown]
  - Respiration abnormal [Unknown]
  - Arthralgia [Unknown]
  - Vitreous floaters [Unknown]
  - Confusional state [Unknown]
  - Fatigue [Unknown]
  - Bone pain [Unknown]
